FAERS Safety Report 6635158-7 (Version None)
Quarter: 2010Q1

REPORT INFORMATION
  Report Type: 
  Country: None (occurrence: None)
  Receive Date: 20100315
  Receipt Date: 20100308
  Transmission Date: 20100710
  Serious: Yes (Hospitalization, Other)
  Sender: FDA-Public Use
  Company Number: PHHO2010DK03595

PATIENT
  Sex: Male

DRUGS (3)
  1. ALISKIREN ALI+TAB [Suspect]
     Indication: ACUTE MYOCARDIAL INFARCTION
     Dosage: 300MG/DAY
     Route: 048
     Dates: start: 20080911
  2. ENALAPRIL MALEATE [Concomitant]
  3. DIMITONE [Concomitant]

REACTIONS (3)
  - FALL [None]
  - HYPOTENSION [None]
  - INFLUENZA [None]
